FAERS Safety Report 8259542-3 (Version None)
Quarter: 2012Q2

REPORT INFORMATION
  Report Type: 
  Country: None (occurrence: None)
  Receive Date: 20120404
  Receipt Date: 20120328
  Transmission Date: 20120825
  Serious: Yes (Life-Threatening)
  Sender: FDA-Public Use
  Company Number: DE-MERCK-1203DEU00091

PATIENT
  Age: 63 Year
  Sex: Female

DRUGS (13)
  1. AMBROXOL HYDROCHLORIDE [Concomitant]
     Route: 065
  2. CANCIDAS [Suspect]
     Indication: SEPSIS
     Route: 042
     Dates: start: 20120302, end: 20120313
  3. DIHYDRALAZINE MESYLATE [Concomitant]
     Route: 065
  4. ENOXAPARIN SODIUM [Concomitant]
     Route: 065
  5. HYDROCHLOROTHIAZIDE [Concomitant]
     Route: 065
  6. LEVOTHYROXINE SODIUM [Concomitant]
     Route: 048
  7. CARBOHYDRATES (UNSPECIFIED) AND FAT (UNSPECIFIED) AND MINERALS (UNSPEC [Concomitant]
     Route: 065
  8. LEVETIRACETAM [Concomitant]
     Route: 065
  9. AMLODIPINE BESYLATE [Concomitant]
     Route: 048
  10. AMPHOTERICIN B [Concomitant]
     Route: 065
  11. AMPHOTERICIN B [Concomitant]
     Route: 048
  12. CLONIDINE [Concomitant]
     Route: 065
  13. CARBOHYDRATES (UNSPECIFIED) AND FAT (UNSPECIFIED) AND MINERALS (UNSPEC [Concomitant]
     Route: 065

REACTIONS (1)
  - PATHOGEN RESISTANCE [None]
